FAERS Safety Report 9003237 (Version 2)
Quarter: 2013Q1

REPORT INFORMATION
  Report Type: Spontaneous
  Country: US (occurrence: US)
  Receive Date: 20130108
  Receipt Date: 20130121
  Transmission Date: 20140127
  Serious: Yes (Hospitalization)
  Sender: FDA-Public Use
  Company Number: US-PERRIGO-12US011202

PATIENT
  Age: 70 Year
  Sex: Male
  Weight: 77.1 kg

DRUGS (6)
  1. LOPERAMIDE HYDROCHLORIDE 2 MG 224 [Suspect]
     Indication: DIARRHOEA
     Dosage: 4 MG, PRN
     Route: 048
     Dates: start: 2010, end: 20121205
  2. LOPERAMIDE HYDROCHLORIDE 2 MG 224 [Suspect]
     Dosage: 4 MG, SINGLE
     Route: 048
     Dates: start: 20121206, end: 20121206
  3. GAMUNEX [Concomitant]
     Indication: CHRONIC INFLAMMATORY DEMYELINATING POLYRADICULONEUROPATHY
     Dosage: UNK, Q5 WEEKS
     Route: 042
     Dates: start: 2010
  4. METFORMIN [Concomitant]
     Indication: DIABETES MELLITUS
     Dosage: UNK, BID
     Route: 048
  5. INSULIN [Concomitant]
     Indication: DIABETES MELLITUS
     Dosage: UNK, UNK
     Route: 058
  6. ANTIHYPERTENSIVES [Concomitant]
     Indication: HYPERTENSION
     Dosage: UNK, UNK
     Route: 065

REACTIONS (3)
  - Loss of consciousness [Recovered/Resolved]
  - Nausea [Recovered/Resolved]
  - Wrong technique in drug usage process [Unknown]
